FAERS Safety Report 6775763-0 (Version None)
Quarter: 2010Q2

REPORT INFORMATION
  Report Type: 
  Country: None (occurrence: None)
  Receive Date: 20100617
  Receipt Date: 20100609
  Transmission Date: 20101027
  Serious: Yes (Death, Hospitalization)
  Sender: FDA-Public Use
  Company Number: BR-ABBOTT-10P-020-0647913-00

PATIENT
  Age: 35 Day

DRUGS (1)
  1. SEVOFLURANE [Suspect]
     Indication: INDUCTION OF ANAESTHESIA
     Dates: start: 20100528

REACTIONS (10)
  - ABDOMINAL DISTENSION [None]
  - CARDIO-RESPIRATORY ARREST [None]
  - DYSPNOEA [None]
  - HYPOTENSION [None]
  - INCREASED BRONCHIAL SECRETION [None]
  - IRRITABILITY [None]
  - PULMONARY HAEMORRHAGE [None]
  - RESPIRATORY DEPRESSION [None]
  - SEPSIS [None]
  - SHOCK [None]
